FAERS Safety Report 8274806-5 (Version None)
Quarter: 2012Q2

REPORT INFORMATION
  Report Type: 
  Country: None (occurrence: None)
  Receive Date: 20120409
  Receipt Date: 20120330
  Transmission Date: 20120825
  Serious: Yes (Other)
  Sender: FDA-Public Use
  Company Number: 1245920

PATIENT
  Sex: Male

DRUGS (4)
  1. (BEVACIZUMAB) [Suspect]
     Indication: COLORECTAL CANCER
     Dosage: INTRAVENOUS DRIP
     Route: 041
  2. FLUOROURACIL [Suspect]
     Indication: PRODUCT USED FOR UNKNOWN INDICATION
  3. IRINOTECAN HYDROCHLORIDE [Suspect]
     Indication: PRODUCT USED FOR UNKNOWN INDICATION
  4. LEUCOVORIN CALCIUM [Suspect]
     Indication: PRODUCT USED FOR UNKNOWN INDICATION

REACTIONS (3)
  - ANGIOEDEMA [None]
  - CAECITIS [None]
  - INTESTINAL MUCOSAL HYPERTROPHY [None]
